FAERS Safety Report 4683118-8 (Version None)
Quarter: 2005Q2

REPORT INFORMATION
  Report Type: 
  Country: None (occurrence: None)
  Receive Date: 20050602
  Receipt Date: 20050307
  Transmission Date: 20051028
  Serious: No
  Sender: FDA-Public Use
  Company Number: USA050392594

PATIENT
  Age: 63 Year
  Sex: Female

DRUGS (7)
  1. CYMBALTA [Suspect]
     Indication: DEPRESSION
     Dosage: 60 MG DAY
     Dates: start: 20041221, end: 20050223
  2. SYNTHROID [Concomitant]
  3. PULMICORT [Concomitant]
  4. PULMICORT RESPULES [Concomitant]
  5. WELLBUTRIN SR [Concomitant]
  6. NEURONTIN(GABAPENTIN PFIZER) [Concomitant]
  7. NASAREL(FLUNISOLIDE) [Concomitant]

REACTIONS (4)
  - ABDOMINAL DISTENSION [None]
  - DIARRHOEA [None]
  - FLATULENCE [None]
  - MUSCLE SPASMS [None]
